FAERS Safety Report 5460745-1 (Version None)
Quarter: 2007Q3

REPORT INFORMATION
  Report Type: 
  Country: None (occurrence: None)
  Receive Date: 20070919
  Receipt Date: 20070914
  Transmission Date: 20080115
  Serious: Yes (Other)
  Sender: FDA-Public Use
  Company Number: CH-MERCK-0709CHE00016

PATIENT
  Age: 45 Year
  Sex: Female
  Weight: 50 kg

DRUGS (2)
  1. FOSAMAX [Suspect]
     Indication: OSTEOPOROSIS
     Route: 048
     Dates: start: 20061111, end: 20070531
  2. FOSAMAX [Suspect]
     Route: 048
     Dates: start: 20070701, end: 20070101

REACTIONS (1)
  - FATIGUE [None]
